FAERS Safety Report 7816234-X (Version None)
Quarter: 2011Q4

REPORT INFORMATION
  Report Type: 
  Country: None (occurrence: None)
  Receive Date: 20111016
  Receipt Date: 20111007
  Transmission Date: 20120403
  Serious: Yes (Death)
  Sender: FDA-Public Use
  Company Number: US-CELGENEUS-163-21880-11090216

PATIENT
  Sex: Male

DRUGS (12)
  1. ASPIRIN [Concomitant]
     Dosage: 81 MILLIGRAM
     Route: 048
  2. DEXAMETHASONE [Concomitant]
     Dosage: FIVE TABLETS
     Route: 048
  3. FISH OIL [Concomitant]
     Dosage: 1000 MILLIGRAM
     Route: 048
  4. GLIPIZIDE [Concomitant]
     Dosage: 10 MILLIGRAM
     Route: 048
  5. MIRALAX [Concomitant]
     Dosage: 34 GRAM
     Route: 048
  6. NITROSTAT [Concomitant]
     Dosage: .4 MILLIGRAM
     Route: 060
  7. REVLIMID [Suspect]
     Indication: MULTIPLE MYELOMA
     Dosage: 25 MILLIGRAM
     Route: 048
     Dates: start: 20110314, end: 20110601
  8. REVLIMID [Suspect]
     Dosage: 25 MILLIGRAM
     Route: 048
     Dates: start: 20110831, end: 20110831
  9. PLAVIX [Concomitant]
     Dosage: 75 MILLIGRAM
     Route: 048
  10. ACETAMINOPHEN [Concomitant]
     Dosage: 650 MILLIGRAM
     Route: 048
  11. ACYCLOVIR [Concomitant]
     Dosage: 400 MILLIGRAM
     Route: 048
  12. FUROSEMIDE [Concomitant]
     Dosage: 20 MILLIGRAM
     Route: 048

REACTIONS (1)
  - SUDDEN DEATH [None]
